FAERS Safety Report 4345731-7 (Version None)
Quarter: 2004Q2

REPORT INFORMATION
  Report Type: 
  Country: None (occurrence: None)
  Receive Date: 20040421
  Receipt Date: 20040412
  Transmission Date: 20050107
  Serious: Yes (Other)
  Sender: FDA-Public Use
  Company Number: 2004025242

PATIENT
  Age: 60 Year
  Sex: Female

DRUGS (3)
  1. ATORVASTATIN (ATORVASTATIN) [Suspect]
     Indication: HYPERCHOLESTEROLAEMIA
     Dosage: 40 MG DAILY , ORAL
     Route: 048
     Dates: start: 20040319
  2. LEVOTHYROXINE [Concomitant]
  3. ASPIRIN [Concomitant]

REACTIONS (1)
  - RETINAL DETACHMENT [None]
